FAERS Safety Report 4814143-1 (Version None)
Quarter: 2005Q4

REPORT INFORMATION
  Report Type: 
  Country: None (occurrence: None)
  Receive Date: 20051028
  Receipt Date: 20050707
  Transmission Date: 20060501
  Serious: No
  Sender: FDA-Public Use
  Company Number: US-GLAXOSMITHKLINE-A0565305A

PATIENT
  Age: 74 Year
  Sex: Female

DRUGS (15)
  1. ADVAIR DISKUS 100/50 [Suspect]
     Indication: ASTHMA
     Dosage: 1PUFF TWICE PER DAY
     Route: 055
     Dates: start: 20041201
  2. NYSTATIN [Concomitant]
  3. THEOPHYLLINE [Concomitant]
  4. LEVOXYL [Concomitant]
  5. ALLEGRA [Concomitant]
  6. ETODOLAC [Concomitant]
  7. ACTONEL [Concomitant]
  8. TIMOPTIC [Concomitant]
  9. XALATAN [Concomitant]
  10. IMITREX [Concomitant]
  11. PROTONIX [Concomitant]
  12. DARVON [Concomitant]
  13. MULTI-VITAMIN [Concomitant]
  14. VITAMIN E [Concomitant]
  15. GARLIC [Concomitant]

REACTIONS (1)
  - CANDIDIASIS [None]
